FAERS Safety Report 11813978 (Version 1)
Quarter: 2015Q4

REPORT INFORMATION
  Report Type: Report from Study
  Country: FI (occurrence: FI)
  Receive Date: 20151209
  Receipt Date: 20151209
  Transmission Date: 20160305
  Serious: Yes (Hospitalization)
  Sender: FDA-Public Use
  Company Number: FI-TEVA-616557ISR

PATIENT
  Age: 68 Year
  Sex: Male
  Weight: 84 kg

DRUGS (5)
  1. LMWH(DALTEPARIN SODIUM) [Suspect]
     Active Substance: DALTEPARIN SODIUM
     Indication: CORONARY ARTERY DISEASE
     Dates: start: 20150502, end: 20150507
  2. LMWH(DALTEPARIN SODIUM) [Suspect]
     Active Substance: DALTEPARIN SODIUM
     Indication: FRIEDREICH^S ATAXIA
  3. ASPIRIN. [Suspect]
     Active Substance: ASPIRIN
     Dosage: 100 MILLIGRAM DAILY;
     Dates: start: 20150502
  4. CHLOPIDOGREL(CLOPIDOGREL) [Suspect]
     Active Substance: CLOPIDOGREL BISULFATE
     Indication: CORONARY ARTERY DISEASE
     Dosage: 75 MILLIGRAM DAILY;
     Dates: start: 20150502
  5. WARFARIN [Suspect]
     Active Substance: WARFARIN
     Indication: ATRIAL FIBRILLATION
     Dosage: 5 MILLIGRAM DAILY;
     Route: 048
     Dates: start: 20150505, end: 20150506

REACTIONS (1)
  - Syncope [Recovered/Resolved]

NARRATIVE: CASE EVENT DATE: 20151019
